FAERS Safety Report 7051193-1 (Version None)
Quarter: 2010Q4

REPORT INFORMATION
  Report Type: 
  Country: None (occurrence: None)
  Receive Date: 20101019
  Receipt Date: 20101007
  Transmission Date: 20110411
  Serious: Yes (Other)
  Sender: FDA-Public Use
  Company Number: PHHY2010MX67292

PATIENT
  Sex: Female

DRUGS (3)
  1. RASILEZ [Suspect]
     Indication: HYPERTENSION
     Dosage: 1 TABLET (150 MG) PER DAY
     Dates: start: 20100101, end: 20100601
  2. GALVUS MET [Suspect]
  3. DILATREND [Concomitant]

REACTIONS (3)
  - BLOOD POTASSIUM DECREASED [None]
  - POLLAKIURIA [None]
  - SYNCOPE [None]
